FAERS Safety Report 25599973 (Version 1)
Quarter: 2025Q3

REPORT INFORMATION
  Report Type: Spontaneous
  Country: NP (occurrence: NP)
  Receive Date: 20250724
  Receipt Date: 20250724
  Transmission Date: 20251021
  Serious: No
  Sender: ALKEM
  Company Number: None

PATIENT
  Age: 57 Year
  Sex: Female

DRUGS (1)
  1. ITRACONAZOLE [Suspect]
     Active Substance: ITRACONAZOLE
     Indication: Tinea cruris
     Dosage: 100 MILLIGRAM, BID (TWICE DAILY) (CONTINUED THE MEDICATION FOR AN ADDITIONAL 4 DAYS)
     Route: 048

REACTIONS (1)
  - Drug eruption [Recovering/Resolving]
